FAERS Safety Report 6115819-9 (Version None)
Quarter: 2009Q1

REPORT INFORMATION
  Report Type: 
  Country: None (occurrence: None)
  Receive Date: 20090311
  Receipt Date: 20090224
  Transmission Date: 20090719
  Serious: Yes (Death, Hospitalization)
  Sender: FDA-Public Use
  Company Number: 2009S1003219

PATIENT
  Age: 48 Year
  Sex: Male

DRUGS (3)
  1. AZITHROMYCIN [Suspect]
     Indication: UPPER RESPIRATORY TRACT INFECTION
  2. AZATHIOPRINE [Suspect]
     Indication: IMMUNOSUPPRESSION
  3. PREDNISONE [Suspect]
     Indication: IMMUNOSUPPRESSION

REACTIONS (10)
  - ABDOMINAL INFECTION [None]
  - BUNDLE BRANCH BLOCK RIGHT [None]
  - DRUG RASH WITH EOSINOPHILIA AND SYSTEMIC SYMPTOMS [None]
  - GALLOP RHYTHM PRESENT [None]
  - HYPERSENSITIVITY [None]
  - HYPOTENSION [None]
  - MYOCARDITIS [None]
  - PERICARDIAL EFFUSION [None]
  - SEPSIS [None]
  - SINUS TACHYCARDIA [None]
